FAERS Safety Report 9742831 (Version 1)
Quarter: 2013Q4

REPORT INFORMATION
  Report Type: Spontaneous
  Country: US (occurrence: US)
  Receive Date: 20131210
  Receipt Date: 20131210
  Transmission Date: 20140711
  Serious: Yes (Other)
  Sender: FDA-Public Use
  Company Number: US-SA-2013SA127616

PATIENT
  Age: 41 Year
  Sex: Male

DRUGS (1)
  1. LOVENOX [Suspect]
     Indication: HYPERCOAGULATION
     Route: 051

REACTIONS (3)
  - Adverse event [Not Recovered/Not Resolved]
  - Thrombosis [Not Recovered/Not Resolved]
  - Pain [Not Recovered/Not Resolved]
